FAERS Safety Report 8965699 (Version 4)
Quarter: 2013Q1

REPORT INFORMATION
  Report Type: Spontaneous
  Country: US (occurrence: None)
  Receive Date: 20121206
  Receipt Date: 20130228
  Transmission Date: 20140127
  Serious: Yes (Hospitalization, Other)
  Sender: FDA-Public Use
  Company Number: JPI-P-026698

PATIENT
  Age: 63 Year
  Sex: Male

DRUGS (2)
  1. XYREM [Suspect]
     Indication: INSOMNIA
     Dosage: 4.5 GM (2.25 GM, 2 IN 1 D), ORAL STOPPED
     Route: 048
     Dates: start: 20120501
  2. UNSPECIFIED MEDICATIONS [Suspect]
     Indication: PRODUCT USED FOR UNKNOWN INDICATION

REACTIONS (8)
  - Potentiating drug interaction [None]
  - Bacterial infection [None]
  - Staphylococcal infection [None]
  - Overdose [None]
  - Memory impairment [None]
  - Loss of consciousness [None]
  - Fall [None]
  - Laceration [None]
